FAERS Safety Report 18670086 (Version 4)
Quarter: 2021Q1

REPORT INFORMATION
  Report Type: Report from Study
  Country: CA (occurrence: CA)
  Receive Date: 20201228
  Receipt Date: 20210224
  Transmission Date: 20210419
  Serious: Yes (Other)
  Sender: FDA-Public Use
  Company Number: CA-GLAXOSMITHKLINE-CA2020AMR235154

PATIENT
  Age: 69 Year
  Sex: Female

DRUGS (2)
  1. MEPOLIZUMAB [Suspect]
     Active Substance: MEPOLIZUMAB
     Indication: ASTHMA
     Dosage: 100 MG, Z MONTHLY
     Route: 042
     Dates: start: 20181213
  2. MEPOLIZUMAB [Suspect]
     Active Substance: MEPOLIZUMAB
     Dosage: 100 MG, Z MONTHLY
     Route: 042

REACTIONS (6)
  - Synovial cyst removal [Unknown]
  - SARS-CoV-2 test negative [Unknown]
  - Amputation [Unknown]
  - Procedural pain [Unknown]
  - Breast calcifications [Unknown]
  - Breast cancer [Unknown]

NARRATIVE: CASE EVENT DATE: 202102
